FAERS Safety Report 12448850 (Version 1)
Quarter: 2016Q2

REPORT INFORMATION
  Report Type: Spontaneous
  Country: US (occurrence: US)
  Receive Date: 20160608
  Receipt Date: 20160608
  Transmission Date: 20160815
  Serious: Yes (Other)
  Sender: FDA-Public Use
  Company Number: US-JNJFOC-20160604241

PATIENT
  Sex: Male
  Weight: 88 kg

DRUGS (1)
  1. REMICADE [Suspect]
     Active Substance: INFLIXIMAB
     Indication: CROHN^S DISEASE
     Dosage: FOR 5 YEARS
     Route: 042
     Dates: start: 2011

REACTIONS (3)
  - Systemic lupus erythematosus rash [Unknown]
  - Neuropathy peripheral [Unknown]
  - Antinuclear antibody positive [Unknown]

NARRATIVE: CASE EVENT DATE: 2015
